FAERS Safety Report 13537245 (Version 1)
Quarter: 2017Q2

REPORT INFORMATION
  Report Type: Spontaneous
  Country: US (occurrence: US)
  Receive Date: 20170511
  Receipt Date: 20170511
  Transmission Date: 20170830
  Serious: Yes (Other)
  Sender: FDA-Public Use
  Company Number: US-MYLANLABS-2017M1028231

PATIENT

DRUGS (1)
  1. FUROSEMIDE TABLETS USP [Suspect]
     Active Substance: FUROSEMIDE
     Indication: FLUID RETENTION
     Dosage: UNK

REACTIONS (2)
  - Atrial fibrillation [Not Recovered/Not Resolved]
  - Arthralgia [Not Recovered/Not Resolved]
